FAERS Safety Report 7095278-2 (Version None)
Quarter: 2010Q4

REPORT INFORMATION
  Report Type: 
  Country: None (occurrence: None)
  Receive Date: 20101102
  Receipt Date: 20101014
  Transmission Date: 20110411
  Serious: No
  Sender: FDA-Public Use
  Company Number: JPI-P-000459

PATIENT
  Age: 26 Year
  Sex: Female
  Weight: 68 kg

DRUGS (9)
  1. XYREM [Suspect]
     Indication: CATAPLEXY
     Dosage: ORAL ; 9 GM (4.5 GM,2 IN 1 D),ORAL
     Route: 048
     Dates: start: 20050801, end: 20061110
  2. XYREM [Suspect]
     Indication: CATAPLEXY
     Dosage: ORAL ; 9 GM (4.5 GM,2 IN 1 D),ORAL
     Route: 048
     Dates: start: 20061111
  3. XYREM [Suspect]
  4. XYREM [Suspect]
  5. CLOMIPRAMINE HYDROCHLORIDE [Concomitant]
  6. METHYLPHENIDATE HCL [Concomitant]
  7. DOXYCYCLINE [Concomitant]
  8. TRETINOIN [Concomitant]
  9. MAZINDOL [Concomitant]

REACTIONS (26)
  - AGITATION [None]
  - ASTHENIA [None]
  - BALANCE DISORDER [None]
  - CLONUS [None]
  - CONDITION AGGRAVATED [None]
  - CONFUSIONAL STATE [None]
  - DISORIENTATION [None]
  - ENURESIS [None]
  - FALL [None]
  - FATIGUE [None]
  - HEAD INJURY [None]
  - HEADACHE [None]
  - HYPERHIDROSIS [None]
  - HYPNAGOGIC HALLUCINATION [None]
  - INSOMNIA [None]
  - MALAISE [None]
  - NAUSEA [None]
  - NIGHTMARE [None]
  - PARAESTHESIA [None]
  - SLEEP DISORDER [None]
  - SLEEP PARALYSIS [None]
  - SOMNAMBULISM [None]
  - TACHYCARDIA [None]
  - VERTIGO [None]
  - VOMITING [None]
  - WEIGHT INCREASED [None]
